FAERS Safety Report 9710962 (Version 1)
Quarter: 2013Q4

REPORT INFORMATION
  Report Type: Spontaneous
  Country: US (occurrence: US)
  Receive Date: 20131126
  Receipt Date: 20131126
  Transmission Date: 20140711
  Serious: No
  Sender: FDA-Public Use
  Company Number: US-BRISTOL-MYERS SQUIBB COMPANY-19074723

PATIENT
  Age: 5 Decade
  Sex: Female

DRUGS (1)
  1. BYETTA [Suspect]
     Indication: TYPE 2 DIABETES MELLITUS
     Dosage: INCREASED DOSE-10MCG?THERAPY- 5TO 6 YRS AGO

REACTIONS (2)
  - Nausea [Recovered/Resolved]
  - Diarrhoea [Recovering/Resolving]
